FAERS Safety Report 6462424 (Version 2)
Quarter: 2013Q2

REPORT INFORMATION
  Report Type: Spontaneous
  Country: GB (occurrence: GB)
  Receive Date: 20071106
  Receipt Date: 20130415
  Transmission Date: 20140414
  Serious: Yes (Other)
  Sender: FDA-Public Use
  Company Number: GB-RB-008272-07

PATIENT
  Age: 28 Year
  Sex: Female

DRUGS (5)
  1. SUBUTEX [Suspect]
     Indication: DRUG ABUSE
     Route: 060
     Dates: start: 20061201, end: 20070223
  2. QVAR [Suspect]
     Indication: ASTHMA
     Route: 055
     Dates: start: 20060609
  3. SALBUTAMOL [Suspect]
     Indication: ASTHMA
     Route: 055
  4. DOMPERIDONE [Concomitant]
     Indication: MALAISE
     Route: 048
     Dates: start: 20070105
  5. CEFACLOR [Concomitant]
     Indication: URINARY TRACT INFECTION
     Route: 048
     Dates: start: 20070417

REACTIONS (4)
  - Foetal death [Recovered/Resolved]
  - Urinary tract infection [Unknown]
  - Malaise [Unknown]
  - Exposure during pregnancy [Recovered/Resolved]
